FAERS Safety Report 19956310 (Version 2)
Quarter: 2021Q4

REPORT INFORMATION
  Report Type: Spontaneous
  Country: US (occurrence: US)
  Receive Date: 20211014
  Receipt Date: 20211111
  Transmission Date: 20220303
  Serious: No
  Sender: FDA-Public Use
  Company Number: US-PFIZER INC-202101222316

PATIENT
  Age: 14 Year
  Sex: Male
  Weight: 48.99 kg

DRUGS (1)
  1. GENOTROPIN [Suspect]
     Active Substance: SOMATROPIN
     Indication: Growth hormone deficiency
     Dosage: UNK
     Dates: start: 202102

REACTIONS (4)
  - Device issue [Unknown]
  - Device mechanical issue [Unknown]
  - Device breakage [Unknown]
  - Drug dose omission by device [Unknown]
